FAERS Safety Report 22859919 (Version 10)
Quarter: 2024Q3

REPORT INFORMATION
  Report Type: Spontaneous
  Country: US (occurrence: US)
  Receive Date: 20230824
  Receipt Date: 20240926
  Transmission Date: 20241017
  Serious: No
  Sender: BIOGEN
  Company Number: US-BIOGEN-2023BI01222478

PATIENT
  Sex: Male

DRUGS (3)
  1. VUMERITY [Suspect]
     Active Substance: DIROXIMEL FUMARATE
     Indication: Multiple sclerosis
     Dosage: ALSO REPORTED AS 24-MAY-2023
     Route: 050
     Dates: start: 20201123
  2. VUMERITY [Suspect]
     Active Substance: DIROXIMEL FUMARATE
     Dosage: 231 MILLIGRAMS 2 CAPSULES BY MOUTH TWICE DAILY SWALLOW CAPSULE WHOLE DO NOT OPEN CRUSH OR CHEW
     Route: 050
     Dates: start: 20231123, end: 2024
  3. LIPITOR [Concomitant]
     Active Substance: ATORVASTATIN CALCIUM
     Indication: Product used for unknown indication
     Route: 050

REACTIONS (10)
  - Drug ineffective [Unknown]
  - Visual impairment [Not Recovered/Not Resolved]
  - Dysgraphia [Not Recovered/Not Resolved]
  - Head injury [Not Recovered/Not Resolved]
  - Back pain [Unknown]
  - Contusion [Unknown]
  - Cataract [Unknown]
  - Multiple sclerosis [Unknown]
  - Balance disorder [Unknown]
  - Fall [Recovered/Resolved]

NARRATIVE: CASE EVENT DATE: 20230101
